FAERS Safety Report 6052791-4 (Version None)
Quarter: 2009Q1

REPORT INFORMATION
  Report Type: 
  Country: None (occurrence: None)
  Receive Date: 20090127
  Receipt Date: 20090122
  Transmission Date: 20090719
  Serious: No
  Sender: FDA-Public Use
  Company Number: US-JNJFOC-20090106033

PATIENT
  Age: 25 Year
  Sex: Male

DRUGS (1)
  1. INVEGA [Suspect]
     Indication: DRUG USE FOR UNKNOWN INDICATION
     Route: 048
     Dates: start: 20080801, end: 20090122

REACTIONS (3)
  - ABDOMINAL PAIN [None]
  - SEDATION [None]
  - SWOLLEN TONGUE [None]
